FAERS Safety Report 8951062 (Version 1)
Quarter: 2012Q4

REPORT INFORMATION
  Report Type: 
  Country: DE (occurrence: DE)
  Receive Date: 20121207
  Receipt Date: 20121207
  Transmission Date: 20130627
  Serious: Yes (Hospitalization, Other)
  Sender: FDA-Public Use
  Company Number: DE-PFIZER INC-2012267546

PATIENT
  Age: 73 Year
  Sex: Male
  Weight: 83 kg

DRUGS (1)
  1. TOVIAZ [Suspect]
     Indication: NOCTURIA
     Dosage: 4 mg, 1x/day
     Dates: start: 20121023

REACTIONS (2)
  - Urinary retention [Recovered/Resolved]
  - Pain [Unknown]
